FAERS Safety Report 16166307 (Version 1)
Quarter: 2019Q2

REPORT INFORMATION
  Report Type: Spontaneous
  Country: US (occurrence: US)
  Receive Date: 20190406
  Receipt Date: 20190406
  Transmission Date: 20190711
  Serious: Yes (Hospitalization, Other)
  Sender: FDA-Public Use
  Company Number: US-TAKEDA-2019TUS020016

PATIENT
  Age: 39 Year
  Sex: Female

DRUGS (1)
  1. ENTYVIO [Suspect]
     Active Substance: VEDOLIZUMAB
     Indication: COLITIS ULCERATIVE
     Dosage: 300 MILLIGRAM
     Route: 042
     Dates: start: 2014, end: 201804

REACTIONS (9)
  - Basedow^s disease [Unknown]
  - Arthralgia [Unknown]
  - Weight increased [Unknown]
  - Anxiety [Unknown]
  - Depression [Unknown]
  - Fibromyalgia [Unknown]
  - Abdominal mass [Unknown]
  - Hospitalisation [Unknown]
  - Neuropathy peripheral [Unknown]
